FAERS Safety Report 20017596 (Version 2)
Quarter: 2025Q4

REPORT INFORMATION
  Report Type: Spontaneous
  Country: US (occurrence: US)
  Receive Date: 20211031
  Receipt Date: 20251224
  Transmission Date: 20260117
  Serious: Yes (Other)
  Sender: COOPERSURGICAL
  Company Number: US-COOPERSURGICAL, INC.-US-2021CPS003258

PATIENT
  Age: 22 Year
  Sex: Female
  Weight: 81.633 kg

DRUGS (1)
  1. PARAGARD T 380A [Suspect]
     Active Substance: COPPER
     Indication: Product used for unknown indication
     Dosage: UNK
     Route: 015
     Dates: start: 20110101, end: 20190930

REACTIONS (21)
  - Suicidal ideation [Unknown]
  - Device breakage [Recovered/Resolved]
  - Foreign body in reproductive tract [Recovered/Resolved]
  - Complication of device removal [Recovered/Resolved]
  - Embedded device [Recovered/Resolved]
  - Anxiety [Unknown]
  - Panic attack [Unknown]
  - Procedural pain [Recovered/Resolved]
  - Sensation of foreign body [Unknown]
  - Uterine pain [Unknown]
  - Abdominal pain upper [Not Recovered/Not Resolved]
  - Pain [Unknown]
  - Infection [Recovered/Resolved]
  - Back pain [Not Recovered/Not Resolved]
  - Vaginal discharge [Unknown]
  - Pelvic discomfort [Unknown]
  - Intermenstrual bleeding [Unknown]
  - Menstrual disorder [Unknown]
  - Pelvic pain [Unknown]
  - Abdominal pain lower [Unknown]
  - Heavy menstrual bleeding [Unknown]

NARRATIVE: CASE EVENT DATE: 20120101
